FAERS Safety Report 15041336 (Version 1)
Quarter: 2018Q2

REPORT INFORMATION
  Report Type: Spontaneous
  Country: GB (occurrence: GB)
  Receive Date: 20180621
  Receipt Date: 20180621
  Transmission Date: 20180711
  Serious: Yes (Other)
  Sender: FDA-Public Use
  Company Number: GB-TEVA-2018-GB-910907

PATIENT
  Age: 51 Year
  Sex: Male
  Weight: 65 kg

DRUGS (14)
  1. PARACETAMOL [Concomitant]
     Active Substance: ACETAMINOPHEN
     Dosage: 8 DOSAGE FORMS DAILY;
     Route: 065
     Dates: start: 20170302
  2. SODIUM CROMOGLICATE [Concomitant]
     Active Substance: CROMOLYN SODIUM
     Dosage: 4 GTT DAILY; TO BOTH EYES
     Route: 047
     Dates: start: 20170807
  3. BUDESONIDE. [Concomitant]
     Active Substance: BUDESONIDE
     Dosage: 8 DOSAGE FORMS DAILY;
     Dates: start: 20170302
  4. CLARITHROMYCIN. [Suspect]
     Active Substance: CLARITHROMYCIN
     Route: 048
     Dates: start: 20180504, end: 20180507
  5. ORAL REHYDRATION SALTS [Concomitant]
     Dosage: 1 DOSAGE FORMS DAILY;
     Dates: start: 20180216, end: 20180219
  6. CETIRIZINE [Concomitant]
     Active Substance: CETIRIZINE HYDROCHLORIDE
     Dosage: 1 DOSAGE FORMS DAILY;
     Dates: start: 20170807
  7. ALENDRONIC ACID [Concomitant]
     Active Substance: ALENDRONIC ACID
     Dosage: 1 DOSAGE FORMS DAILY;
     Route: 065
     Dates: start: 20170502
  8. MONTELUKAST [Concomitant]
     Active Substance: MONTELUKAST SODIUM
     Indication: ASTHMA
     Dosage: 1 DOSAGE FORMS DAILY;
     Dates: start: 20170302
  9. AMOXICILLIN. [Concomitant]
     Active Substance: AMOXICILLIN
     Dosage: 3 DOSAGE FORMS DAILY;
     Dates: start: 20180216, end: 20180223
  10. DOXYCYCLINE. [Concomitant]
     Active Substance: DOXYCYCLINE
     Dosage: TWO NOW THEN ONE DAILY
     Route: 065
     Dates: start: 20180508
  11. PREDNISOLONE. [Concomitant]
     Active Substance: PREDNISOLONE
     Dosage: 30 MILLIGRAM DAILY;
     Route: 065
     Dates: start: 20180504
  12. FLIXONASE [Concomitant]
     Active Substance: FLUTICASONE PROPIONATE
     Dosage: 2 DOSAGE FORMS DAILY;
     Dates: start: 20170302
  13. BRICANYL [Concomitant]
     Active Substance: TERBUTALINE SULFATE
     Indication: ASTHMA
     Dosage: 1 DOSAGE FORMS DAILY;
     Route: 055
     Dates: start: 20180504
  14. CALCIUM CARBONATE. [Concomitant]
     Active Substance: CALCIUM CARBONATE
     Dosage: 2 DOSAGE FORMS DAILY;
     Route: 065
     Dates: start: 20170302

REACTIONS (3)
  - Penile erythema [Unknown]
  - Urticaria [Recovered/Resolved]
  - Angioedema [Recovered/Resolved]

NARRATIVE: CASE EVENT DATE: 20180505
